FAERS Safety Report 9464356 (Version 1)
Quarter: 2013Q3

REPORT INFORMATION
  Report Type: Report from Study
  Country: US (occurrence: US)
  Receive Date: 20130819
  Receipt Date: 20130819
  Transmission Date: 20140515
  Serious: Yes (Hospitalization)
  Sender: FDA-Public Use
  Company Number: US-ROCHE-1262485

PATIENT
  Sex: Male

DRUGS (3)
  1. VALCYTE [Suspect]
     Indication: CYTOMEGALOVIRUS INFECTION
     Route: 065
  2. VALCYTE [Suspect]
     Indication: CHORIORETINITIS
  3. VALCYTE [Suspect]
     Indication: HIV INFECTION

REACTIONS (2)
  - Acquired immunodeficiency syndrome [Unknown]
  - Eye disorder [Unknown]
